FAERS Safety Report 10936156 (Version 3)
Quarter: 2015Q4

REPORT INFORMATION
  Report Type: Report from Study
  Country: NZ (occurrence: NZ)
  Receive Date: 20150320
  Receipt Date: 20151130
  Transmission Date: 20160304
  Serious: Yes (Death)
  Sender: FDA-Public Use
  Company Number: NZ-BAXTER-2014BAX038243

PATIENT

DRUGS (1)
  1. PLASMA-LYTE 148 [Suspect]
     Active Substance: MAGNESIUM CHLORIDE\POTASSIUM CHLORIDE\SODIUM ACETATE\SODIUM CHLORIDE\SODIUM GLUCONATE
     Indication: FLUID REPLACEMENT
     Route: 042
     Dates: start: 20140514

REACTIONS (6)
  - Circulatory collapse [Fatal]
  - Multi-organ failure [Fatal]
  - Shock [Fatal]
  - Complications of transplanted kidney [Fatal]
  - Cardiac arrest [Fatal]
  - Lactic acidosis [Fatal]
